FAERS Safety Report 5844479-7 (Version None)
Quarter: 2008Q3

REPORT INFORMATION
  Report Type: 
  Country: None (occurrence: None)
  Receive Date: 20080812
  Receipt Date: 20080807
  Transmission Date: 20090109
  Serious: Yes (Death, Hospitalization)
  Sender: FDA-Public Use
  Company Number: CERZ-1000138

PATIENT
  Age: 28 Year
  Sex: Male
  Weight: 66 kg

DRUGS (2)
  1. CEREZYME [Suspect]
     Indication: GAUCHER'S DISEASE
     Dosage: 4000 U, Q2W, INTRAVENOUS, 4000 U, Q2W, INTRAVENOUS
     Route: 042
     Dates: start: 19980201, end: 20041101
  2. CEREZYME [Suspect]
     Indication: GAUCHER'S DISEASE
     Dosage: 4000 U, Q2W, INTRAVENOUS, 4000 U, Q2W, INTRAVENOUS
     Route: 042
     Dates: start: 20050512

REACTIONS (9)
  - ABSCESS [None]
  - ABSCESS LIMB [None]
  - ARTERIAL INJURY [None]
  - BONE PAIN [None]
  - CATHETER RELATED COMPLICATION [None]
  - CENTRAL LINE INFECTION [None]
  - ENDOCARDITIS [None]
  - POOR VENOUS ACCESS [None]
  - TREATMENT NONCOMPLIANCE [None]
